FAERS Safety Report 20525590 (Version 1)
Quarter: 2022Q1

REPORT INFORMATION
  Report Type: Spontaneous
  Country: IR (occurrence: IR)
  Receive Date: 20220228
  Receipt Date: 20220228
  Transmission Date: 20220423
  Serious: Yes (Other)
  Sender: FDA-Public Use
  Company Number: IR-MYLANLABS-2022M1015558

PATIENT
  Age: 57 Year
  Sex: Male

DRUGS (12)
  1. FLUOROURACIL [Suspect]
     Active Substance: FLUOROURACIL
     Indication: Squamous cell carcinoma
     Dosage: 800 MILLIGRAM/SQ. METER, QD, CONTINUOUS INFUSION OF FLUOROURACIL OVER 120 HOURS IN NORMAL SODIUM-CHL
     Route: 042
  2. FLUOROURACIL [Suspect]
     Active Substance: FLUOROURACIL
     Indication: Pancreatic carcinoma
     Dosage: 400 MILLIGRAM/SQ. METER, CYCLE, ON DAY 1 AS PART OF FOLFIRI REGIMEN
     Route: 042
  3. FLUOROURACIL [Suspect]
     Active Substance: FLUOROURACIL
     Dosage: 2400 MILLIGRAM/SQ. METER, CYCLE, AS A 46 HOURS CONTINUOUS INFUSION (AS PART OF FOLFIRI REGIMEN)
     Route: 042
  4. CISPLATIN [Suspect]
     Active Substance: CISPLATIN
     Indication: Squamous cell carcinoma
     Dosage: 60 MILLIGRAM/SQ. METER, CYCLE, INFUSED FOR 2 HOURS ON DAY 1
     Route: 042
  5. CISPLATIN [Suspect]
     Active Substance: CISPLATIN
     Indication: Pancreatic carcinoma
  6. IRINOTECAN [Suspect]
     Active Substance: IRINOTECAN
     Indication: Squamous cell carcinoma
     Dosage: 180 MILLIGRAM/SQ. METER, CYCLE, ON DAY 1, PART OF FOLFIRI REGIMEN
     Route: 042
  7. IRINOTECAN [Suspect]
     Active Substance: IRINOTECAN
     Indication: Pancreatic carcinoma
  8. LEUCOVORIN [Suspect]
     Active Substance: LEUCOVORIN
     Indication: Squamous cell carcinoma
     Dosage: 400 MILLIGRAM/SQ. METER, CYCLE, OVER 2 HOUR ON DAY 1; FOLFIRI REGIMEN
     Route: 042
  9. LEUCOVORIN [Suspect]
     Active Substance: LEUCOVORIN
     Indication: Pancreatic carcinoma
  10. SALINE [Concomitant]
     Active Substance: SODIUM CHLORIDE
     Indication: Vehicle solution use
     Dosage: 1 LITER, ON DAY 1 THROUGH DAY 5
     Route: 042
  11. GRANISETRON [Concomitant]
     Active Substance: GRANISETRON
     Indication: Nausea
     Dosage: 80 MILLIGRAM
     Route: 042
  12. GRANISETRON [Concomitant]
     Active Substance: GRANISETRON
     Indication: Vomiting

REACTIONS (3)
  - Treatment failure [Unknown]
  - Nausea [Recovered/Resolved]
  - Vomiting [Recovered/Resolved]
